FAERS Safety Report 5496013-1 (Version None)
Quarter: 2007Q4

REPORT INFORMATION
  Report Type: 
  Country: None (occurrence: None)
  Receive Date: 20071025
  Receipt Date: 20070109
  Transmission Date: 20080405
  Serious: No
  Sender: FDA-Public Use
  Company Number: A0634928A

PATIENT
  Age: 75 Year
  Sex: Male

DRUGS (11)
  1. ADVAIR DISKUS 100/50 [Suspect]
     Indication: ASTHMA
     Dosage: 1PUFF TWICE PER DAY
     Route: 055
     Dates: start: 20061201
  2. PLAVIX [Concomitant]
  3. ALTACE [Concomitant]
  4. ZETIA [Concomitant]
  5. LEXAPRO [Concomitant]
  6. NAMENDA [Concomitant]
  7. ARICEPT [Concomitant]
  8. AVODART [Concomitant]
  9. LEVOXYL [Concomitant]
  10. PANCREASE [Concomitant]
  11. RANITIDINE HCL [Concomitant]

REACTIONS (1)
  - DYSPHONIA [None]
